FAERS Safety Report 23426195 (Version 1)
Quarter: 2024Q1

REPORT INFORMATION
  Report Type: Spontaneous
  Country: FR (occurrence: FR)
  Receive Date: 20240122
  Receipt Date: 20240122
  Transmission Date: 20240410
  Serious: Yes (Disabling)
  Sender: FDA-Public Use
  Company Number: None

PATIENT
  Age: 73 Year
  Sex: Male

DRUGS (5)
  1. LIPTRUZET [Suspect]
     Active Substance: ATORVASTATIN CALCIUM\EZETIMIBE
     Indication: Myocardial ischaemia
     Dosage: UNK
     Route: 048
     Dates: start: 2020, end: 202310
  2. REPATHA [Suspect]
     Active Substance: EVOLOCUMAB
     Indication: Myocardial ischaemia
     Dosage: 1 TOTAL, CYCLICAL
     Route: 058
     Dates: start: 202206, end: 20231026
  3. BISOPROLOL FUMARATE [Concomitant]
     Active Substance: BISOPROLOL FUMARATE
  4. ASPIRIN [Concomitant]
     Active Substance: ASPIRIN
  5. INDAPAMIDE [Concomitant]
     Active Substance: INDAPAMIDE

REACTIONS (1)
  - Tendonitis [Recovered/Resolved]

NARRATIVE: CASE EVENT DATE: 20231027
